FAERS Safety Report 17873775 (Version 1)
Quarter: 2020Q2

REPORT INFORMATION
  Report Type: Spontaneous
  Country: DE (occurrence: DE)
  Receive Date: 20200609
  Receipt Date: 20200609
  Transmission Date: 20200714
  Serious: Yes (Hospitalization)
  Sender: FDA-Public Use
  Company Number: DE-AUROBINDO-AUR-APL-2020-027533

PATIENT
  Age: 29 Year
  Sex: Male

DRUGS (12)
  1. ARIPIPRAZOLE TABLETS [Suspect]
     Active Substance: ARIPIPRAZOLE
     Indication: HALLUCINATION
     Dosage: 5 MILLIGRAM, ONCE A DAY
     Route: 048
  2. RISPERIDONE. [Concomitant]
     Active Substance: RISPERIDONE
     Indication: SCHIZOPHRENIA
     Dosage: 37.5 MILLIGRAM (DEPOT 37.5 MG/2 WEEKS)
     Route: 030
  3. HALOPERIDOL. [Concomitant]
     Active Substance: HALOPERIDOL
     Indication: HALLUCINATION
     Dosage: 20 MILLIGRAM, TAPERED OFF
     Route: 048
  4. LORAZEPAM. [Concomitant]
     Active Substance: LORAZEPAM
     Indication: SCHIZOPHRENIA
     Dosage: 4 MILLIGRAM, ONCE A DAY
     Route: 048
  5. RISPERIDONE. [Concomitant]
     Active Substance: RISPERIDONE
     Dosage: 5 MILLIGRAM, ONCE A DAY
     Route: 048
  6. LORAZEPAM. [Concomitant]
     Active Substance: LORAZEPAM
     Indication: HALLUCINATION
     Dosage: UNK, TAPERED OFF
     Route: 065
  7. HALOPERIDOL. [Concomitant]
     Active Substance: HALOPERIDOL
     Indication: SCHIZOPHRENIA
     Dosage: UNK, GRADUALLY TAPERED OFF
     Route: 065
  8. RISPERIDONE. [Concomitant]
     Active Substance: RISPERIDONE
     Indication: HALLUCINATION
     Dosage: 5 MILLIGRAM, ONCE A DAY
     Route: 048
  9. ARIPIPRAZOLE TABLETS [Suspect]
     Active Substance: ARIPIPRAZOLE
     Indication: SCHIZOPHRENIA
  10. RISPERIDONE. [Concomitant]
     Active Substance: RISPERIDONE
     Dosage: 37.5 MILLIGRAM (DEPOT 37.5 MG/2 WEEKS)
     Route: 030
  11. HALOPERIDOL. [Concomitant]
     Active Substance: HALOPERIDOL
     Dosage: 20 MILLIGRAM, ONCE A DAY
     Route: 048
  12. HALOPERIDOL. [Concomitant]
     Active Substance: HALOPERIDOL
     Dosage: 20 MILLIGRAM, ONCE A DAY
     Route: 048

REACTIONS (4)
  - Compulsive sexual behaviour [Recovered/Resolved]
  - Disease recurrence [Recovered/Resolved]
  - Paraphilia [Recovered/Resolved]
  - Hypersexuality [Recovered/Resolved]
